FAERS Safety Report 23883285 (Version 2)
Quarter: 2024Q2

REPORT INFORMATION
  Report Type: Spontaneous
  Country: JP (occurrence: JP)
  Receive Date: 20240522
  Receipt Date: 20240607
  Transmission Date: 20240716
  Serious: Yes (Other)
  Sender: FDA-Public Use
  Company Number: JP-TEVA-VS-3199135

PATIENT
  Age: 54 Year
  Sex: Male

DRUGS (10)
  1. CARBOPLATIN [Suspect]
     Active Substance: CARBOPLATIN
     Indication: Anaplastic lymphoma kinase gene mutation
     Dosage: FOUR CYCLES OF CARBOPLATIN (AREA UNDER THE CURVE 5)
     Route: 065
  2. CARBOPLATIN [Suspect]
     Active Substance: CARBOPLATIN
     Indication: Anaplastic lymphoma kinase gene mutation
     Dosage: THIRD LINE THERAPY
     Route: 065
  3. BEVACIZUMAB [Suspect]
     Active Substance: BEVACIZUMAB
     Indication: Anaplastic lymphoma kinase gene mutation
     Dosage: FOUR CYCLES
     Route: 065
  4. BEVACIZUMAB [Suspect]
     Active Substance: BEVACIZUMAB
     Indication: Anaplastic lymphoma kinase gene mutation
     Dosage: 3 CYCLES OF MAINTENANCE THERAPY WITH BEVACIZUMAB.
     Route: 065
  5. BRIGATINIB [Suspect]
     Active Substance: BRIGATINIB
     Indication: Anaplastic lymphoma kinase gene mutation
     Route: 065
  6. PACLITAXEL [Suspect]
     Active Substance: PACLITAXEL
     Indication: Anaplastic lymphoma kinase gene mutation
     Dosage: FOUR CYCLES
     Route: 065
  7. PACLITAXEL [Suspect]
     Active Substance: PACLITAXEL
     Indication: Anaplastic lymphoma kinase gene mutation
     Dosage: THIRD LINE THERAPY
     Route: 065
  8. ATEZOLIZUMAB [Suspect]
     Active Substance: ATEZOLIZUMAB
     Indication: Anaplastic lymphoma kinase gene mutation
     Dosage: 3 CYCLES OF MAINTENANCE THERAPY
     Route: 065
  9. ATEZOLIZUMAB [Suspect]
     Active Substance: ATEZOLIZUMAB
     Indication: Anaplastic lymphoma kinase gene mutation
     Dosage: FOUR CYCLES OF 1200MG/BODY WEIGHT
     Route: 065
  10. LORLATINIB [Suspect]
     Active Substance: LORLATINIB
     Indication: Anaplastic lymphoma kinase gene mutation
     Route: 065

REACTIONS (4)
  - Liver injury [Recovering/Resolving]
  - Drug ineffective [Unknown]
  - Thrombocytopenia [Recovering/Resolving]
  - Febrile neutropenia [Recovering/Resolving]
